FAERS Safety Report 7041846-3 (Version None)
Quarter: 2010Q4

REPORT INFORMATION
  Report Type: 
  Country: None (occurrence: None)
  Receive Date: 20101007
  Receipt Date: 20101001
  Transmission Date: 20110411
  Serious: Yes (Hospitalization, Other)
  Sender: FDA-Public Use
  Company Number: 018749

PATIENT
  Sex: Male

DRUGS (7)
  1. KEPPRA [Suspect]
     Indication: EPILEPSY
     Dosage: (500 MG BID), (1000 MG BID ORAL)
     Route: 048
     Dates: start: 20050101
  2. KEPPRA [Suspect]
     Indication: EPILEPSY
     Dosage: (500 MG BID), (1000 MG BID ORAL)
     Route: 048
     Dates: start: 20050101
  3. CARBAMAZEPINE [Concomitant]
  4. LYRICA [Concomitant]
  5. VALORON /00205402/ [Concomitant]
  6. LIORESAL [Concomitant]
  7. SEDARISTON /00668701/ [Concomitant]

REACTIONS (2)
  - DEMENTIA [None]
  - PSYCHOTIC DISORDER [None]
